FAERS Safety Report 4836216-X (Version None)
Quarter: 2005Q4

REPORT INFORMATION
  Report Type: 
  Country: None (occurrence: None)
  Receive Date: 20051123
  Receipt Date: 20051117
  Transmission Date: 20060501
  Serious: Yes (Death)
  Sender: FDA-Public Use
  Company Number: JP-AVENTIS-200513425JP

PATIENT
  Sex: Male

DRUGS (1)
  1. AMARYL [Suspect]
     Route: 048

REACTIONS (1)
  - HYPOGLYCAEMIA [None]
